FAERS Safety Report 6278184-2 (Version None)
Quarter: 2009Q3

REPORT INFORMATION
  Report Type: 
  Country: None (occurrence: None)
  Receive Date: 20090722
  Receipt Date: 20071005
  Transmission Date: 20100115
  Serious: Yes (Hospitalization, Other)
  Sender: FDA-Public Use
  Company Number: US-ASTRAZENECA-2006UW22197

PATIENT
  Age: 13065 Day
  Sex: Male
  Weight: 63.1 kg

DRUGS (24)
  1. SEROQUEL [Suspect]
     Indication: DEPRESSION
     Route: 048
     Dates: start: 20010101
  2. SEROQUEL [Suspect]
     Dosage: 100 - 600 MG
     Route: 048
     Dates: start: 20010624
  3. RISPERDAL [Concomitant]
  4. REMERON [Concomitant]
  5. VIOKASE [Concomitant]
  6. TRAZODONE [Concomitant]
  7. LORAZEPAM [Concomitant]
  8. NEURONTIN [Concomitant]
  9. TYLOX [Concomitant]
  10. PHENERGAN [Concomitant]
  11. PROTONIX [Concomitant]
  12. MS CONTIN [Concomitant]
  13. COLACE [Concomitant]
  14. LISINOPRIL [Concomitant]
  15. NEXIUM [Concomitant]
  16. FINASTERIDE [Concomitant]
  17. TYLENOL (CAPLET) [Concomitant]
  18. LANTUS [Concomitant]
  19. ASPART [Concomitant]
  20. NOVOLIN [Concomitant]
  21. AMBIEN [Concomitant]
  22. EFFEXOR [Concomitant]
  23. LEXAPRO [Concomitant]
  24. HYDROXYZINE [Concomitant]

REACTIONS (9)
  - ALCOHOLIC PANCREATITIS [None]
  - BLOOD GLUCOSE INCREASED [None]
  - DIABETES MELLITUS [None]
  - DIABETIC KETOACIDOSIS [None]
  - HYPERGLYCAEMIA [None]
  - PANCREATITIS [None]
  - PANCREATITIS ACUTE [None]
  - PANCREATITIS CHRONIC [None]
  - TRANSAMINASES INCREASED [None]
